FAERS Safety Report 11619887 (Version 4)
Quarter: 2015Q4

REPORT INFORMATION
  Report Type: Spontaneous
  Country: US (occurrence: US)
  Receive Date: 20151012
  Receipt Date: 20151217
  Transmission Date: 20160304
  Serious: Yes (Death, Hospitalization, Other)
  Sender: FDA-Public Use
  Company Number: US-PFIZER INC-2015332690

PATIENT
  Age: 77 Year
  Sex: Male
  Weight: 56 kg

DRUGS (52)
  1. ZESTRIL [Concomitant]
     Active Substance: LISINOPRIL
     Indication: HYPERTENSION
     Dosage: 40 MG, DAILY
     Route: 048
     Dates: start: 20150204, end: 20150419
  2. VISIPAQUE [Concomitant]
     Active Substance: IODIXANOL
     Indication: X-RAY WITH CONTRAST
     Dosage: 320 MG, 1X/DAY
     Route: 042
     Dates: start: 20150419, end: 20150419
  3. METHYLPREDNISOLONE. [Concomitant]
     Active Substance: METHYLPREDNISOLONE
     Indication: SWELLING FACE
  4. FAMOTIDINE. [Concomitant]
     Active Substance: FAMOTIDINE
     Indication: SWELLING FACE
  5. MORPHINE SULFATE. [Concomitant]
     Active Substance: MORPHINE SULFATE
     Dosage: UNK, AS NEEDED (5-20MG; Q1HOUR)
     Route: 048
     Dates: start: 20150908, end: 20150913
  6. PRILOSEC [Concomitant]
     Active Substance: OMEPRAZOLE MAGNESIUM
     Indication: DYSPHAGIA
     Dosage: 40 MG, DAILY
     Route: 048
     Dates: start: 20150904, end: 20150913
  7. COQH [Concomitant]
     Dosage: UNK
  8. LOPRESSOR [Concomitant]
     Active Substance: METOPROLOL TARTRATE
     Dosage: 0.5 MG, 2X/DAY (25 MG TABLETS)
     Route: 048
  9. PERCOCET [Concomitant]
     Active Substance: ACETAMINOPHEN\OXYCODONE HYDROCHLORIDE
     Indication: PAIN
     Dosage: 1 DF, AS NEEDED (OXYCODONE: 5 MG; ACETAMINOPHEN: 325 MG/ EVERY 4 HOUR)
     Route: 048
     Dates: start: 20150324, end: 20150913
  10. CO Q- 10 [Concomitant]
     Indication: NUTRITIONAL SUPPLEMENTATION
     Dosage: UNK (100 MLS)
     Route: 048
  11. MEGACE ORAL [Concomitant]
     Dosage: 800 MG, DAILY
     Route: 048
     Dates: start: 20150831, end: 20150913
  12. VITAMIN E [Concomitant]
     Active Substance: .ALPHA.-TOCOPHEROL
     Indication: PROPHYLAXIS
     Dosage: 400 IU, DAILY
     Route: 048
     Dates: start: 1992, end: 20150202
  13. VITAMIN D3 [Concomitant]
     Active Substance: CHOLECALCIFEROL
     Indication: PROPHYLAXIS
     Dosage: 2000 IU, DAILY
     Route: 048
     Dates: start: 1992, end: 20150329
  14. FAMOTIDINE. [Concomitant]
     Active Substance: FAMOTIDINE
     Indication: ANGIOEDEMA
     Dosage: 20 MG, 1X/DAY
     Route: 042
     Dates: start: 20150419, end: 20150419
  15. INLYTA [Suspect]
     Active Substance: AXITINIB
     Indication: RENAL CELL CARCINOMA
     Dosage: 5 MG, 2X/DAY
     Route: 048
     Dates: start: 20150612, end: 20150830
  16. DYAZIDE [Concomitant]
     Active Substance: HYDROCHLOROTHIAZIDE\TRIAMTERENE
     Indication: HYPERTENSION
     Dosage: 1 DF, DAILY (HYDROCHLOROTHIAZIDE: 37.5MG;TRIAMTERENE: 25 MG/ EVERY MORNING)
     Route: 048
     Dates: start: 20150420, end: 20150720
  17. TENORMIN [Concomitant]
     Active Substance: ATENOLOL
     Indication: HYPERTENSION
     Dosage: 100 MG, DAILY
     Route: 048
     Dates: start: 1992, end: 20150830
  18. MOBIC [Concomitant]
     Active Substance: MELOXICAM
     Indication: JOINT SWELLING
     Dosage: 15 MG, DAILY
     Route: 048
     Dates: start: 20150707, end: 20150719
  19. CO Q- 10 [Concomitant]
     Dosage: UNK
     Dates: start: 20150815, end: 20150913
  20. OSCAL [Concomitant]
     Active Substance: CALCIUM CARBONATE
     Indication: NUTRITIONAL SUPPLEMENTATION
     Dosage: 500 MG, DAILY
     Route: 048
     Dates: start: 1996, end: 20150913
  21. QUESTRAN [Concomitant]
     Active Substance: CHOLESTYRAMINE
     Indication: BLOOD CHOLESTEROL INCREASED
     Dosage: 4 G, 2X/DAY
     Route: 048
     Dates: start: 1992, end: 20150913
  22. VITAMIN B COMPLEX [Concomitant]
     Active Substance: CYANOCOBALAMIN\DEXPANTHENOL\NIACINAMIDE\PYRIDOXINE HYDROCHLORIDE\RIBOFLAVIN 5^-PHOSPHATE SODIUM\THIAMINE HYDROCHLORIDE\VITAMIN B COMPLEX
     Indication: NUTRITIONAL SUPPLEMENTATION
     Dosage: 1 DF, DAILY
     Route: 048
     Dates: start: 1996, end: 20150913
  23. NEURONTIN [Concomitant]
     Active Substance: GABAPENTIN
     Indication: NEUROPATHY PERIPHERAL
     Dosage: 300 MG, 3X/DAY
     Route: 048
     Dates: start: 20150324, end: 20150530
  24. HYDROCHLOROTHIAZIDE. [Concomitant]
     Active Substance: HYDROCHLOROTHIAZIDE
     Dosage: UNK, 1X/DAY
     Route: 048
     Dates: start: 20150721
  25. DYAZIDE [Concomitant]
     Active Substance: HYDROCHLOROTHIAZIDE\TRIAMTERENE
     Dosage: ALTERNATE DAY (HYDROCHLOROTHIAZIDE: 37.5MG;TRIAMTERENE: 25 MG)
     Route: 048
     Dates: start: 20150721, end: 20150831
  26. CO Q- 10 [Concomitant]
     Dosage: 100 MG, DAILY
     Route: 048
     Dates: start: 1996, end: 20150323
  27. ALTOPREV [Concomitant]
     Active Substance: LOVASTATIN
     Dosage: 80 MG, DAILY
     Route: 048
     Dates: start: 1992, end: 20150829
  28. VITAMIN C [Concomitant]
     Active Substance: ASCORBIC ACID
     Indication: NUTRITIONAL SUPPLEMENTATION
     Dosage: 500 MG, DAILY
     Route: 048
     Dates: start: 1996, end: 20150913
  29. ZESTRIL [Concomitant]
     Active Substance: LISINOPRIL
     Indication: HYPERTENSION
     Dosage: 20 MG, DAILY
     Route: 048
     Dates: start: 201404, end: 20150203
  30. BENADRYL [Concomitant]
     Active Substance: DIPHENHYDRAMINE HYDROCHLORIDE
     Indication: SWELLING FACE
  31. PROTONIX [Concomitant]
     Active Substance: PANTOPRAZOLE SODIUM
     Indication: GASTROOESOPHAGEAL REFLUX DISEASE
     Dosage: 40 MG, DAILY (FREQ: DAILY AC BREAKFAST)
     Route: 048
     Dates: start: 20150901, end: 20150903
  32. NORVASC [Concomitant]
     Active Substance: AMLODIPINE BESYLATE
     Indication: HYPERTENSION
     Dosage: 10 MG, DAILY
     Route: 048
     Dates: start: 201406, end: 20150830
  33. TUMS [Concomitant]
     Active Substance: CALCIUM CARBONATE
     Indication: DYSPEPSIA
     Dosage: 500 MG, AS NEEDED
     Route: 048
     Dates: start: 1985, end: 20150913
  34. DIPHENHYDRAMINE. [Concomitant]
     Active Substance: DIPHENHYDRAMINE
     Indication: ANGIOEDEMA
     Dosage: 25 MG, 1X/DAY
     Route: 042
     Dates: start: 20150419, end: 20150419
  35. MORPHINE SULFATE. [Concomitant]
     Active Substance: MORPHINE SULFATE
     Dosage: 1 MG, AS NEEDED (FREQ: Q4H)
     Route: 042
     Dates: start: 20150907, end: 20150907
  36. ZOCOR [Concomitant]
     Active Substance: SIMVASTATIN
     Indication: HYPERLIPIDAEMIA
     Dosage: 15 MG, 1X/DAY (FREQ: NIGHTLY)
     Route: 048
     Dates: start: 20150831, end: 20150902
  37. TRIAMTERENE. [Concomitant]
     Active Substance: TRIAMTERENE
     Dosage: (37.5 - 25) MG, UNK
  38. PRILOSEC [Concomitant]
     Active Substance: OMEPRAZOLE MAGNESIUM
     Indication: GASTROOESOPHAGEAL REFLUX DISEASE
  39. CELEXA [Concomitant]
     Active Substance: CITALOPRAM HYDROBROMIDE
     Indication: DEPRESSION
     Dosage: 20 MG, DAILY
     Route: 048
     Dates: start: 201506
  40. MOBIC [Concomitant]
     Active Substance: MELOXICAM
     Dosage: 15 MG, AS NEEDED
     Dates: start: 20150720, end: 20150903
  41. CHOLESTYRAMINE LIGHT [Concomitant]
     Active Substance: CHOLESTYRAMINE
     Dosage: 4 G, 2X/DAY
     Route: 048
  42. CO Q- 10 [Concomitant]
     Dosage: 200 MG, DAILY
     Route: 048
     Dates: start: 20150324, end: 20150814
  43. MEGACE ORAL [Concomitant]
     Indication: DECREASED APPETITE
     Dosage: UNK UNK, DAILY (TAKE 20 MLS/40 MG/ML SUSPENSION)
     Route: 048
  44. GLYCOLAX [Concomitant]
     Active Substance: POLYETHYLENE GLYCOL 3350
     Indication: PROPHYLAXIS
     Dosage: 17 G, UNK (FREQ: ONCE)
     Route: 048
     Dates: start: 20141215, end: 20141215
  45. TYLENOL [Concomitant]
     Active Substance: ACETAMINOPHEN
     Indication: PAIN
     Dosage: 650 MG, AS NEEDED
     Route: 048
     Dates: start: 20150401, end: 20150913
  46. METHYLPREDNISOLONE. [Concomitant]
     Active Substance: METHYLPREDNISOLONE
     Indication: ANGIOEDEMA
     Dosage: 125 MG, 1X/DAY
     Route: 042
     Dates: start: 20150419, end: 20150419
  47. PRILOSEC [Concomitant]
     Active Substance: OMEPRAZOLE MAGNESIUM
     Indication: DYSPEPSIA
     Dosage: 40 MG, DAILY
     Route: 048
     Dates: start: 20150424, end: 20150830
  48. FLOMAX [Concomitant]
     Active Substance: TAMSULOSIN HYDROCHLORIDE
     Indication: URINARY RETENTION
     Dosage: 0.4 MG, DAILY
     Route: 048
     Dates: start: 201411, end: 20150901
  49. ALTOPREV [Concomitant]
     Active Substance: LOVASTATIN
     Indication: HYPERCHOLESTEROLAEMIA
     Dosage: 40 MG, DAILY
     Route: 048
  50. BENADRYL [Concomitant]
     Active Substance: DIPHENHYDRAMINE HYDROCHLORIDE
     Indication: ANGIOEDEMA
     Dosage: 50 MG, 3X/DAY
     Route: 048
     Dates: start: 20150420, end: 20150423
  51. DIPHENHYDRAMINE. [Concomitant]
     Active Substance: DIPHENHYDRAMINE
     Indication: SWELLING FACE
  52. CITALOPRAM [Concomitant]
     Active Substance: CITALOPRAM HYDROBROMIDE
     Indication: DEPRESSION
     Dosage: 20 MG, DAILY
     Route: 048
     Dates: start: 20150618, end: 20150913

REACTIONS (13)
  - Cardiac failure congestive [Fatal]
  - Pulmonary oedema [Unknown]
  - Renal cell carcinoma [Fatal]
  - Acute kidney injury [Unknown]
  - Acute coronary syndrome [Fatal]
  - Leukocytosis [Unknown]
  - Arteriosclerosis coronary artery [Fatal]
  - Acute respiratory failure [Unknown]
  - Pneumonia [Unknown]
  - Dyspnoea [Recovered/Resolved]
  - Disease progression [Fatal]
  - Myocardial infarction [Unknown]
  - Hypertension [Unknown]

NARRATIVE: CASE EVENT DATE: 2015
